FAERS Safety Report 25704943 (Version 1)
Quarter: 2025Q3

REPORT INFORMATION
  Report Type: Report from Study
  Country: US (occurrence: US)
  Receive Date: 20250820
  Receipt Date: 20250820
  Transmission Date: 20251020
  Serious: Yes (Disabling, Other)
  Sender: SANOFI AVENTIS
  Company Number: US-SANOFI-02085193

PATIENT
  Age: 85 Year
  Sex: Female

DRUGS (1)
  1. DRONEDARONE [Suspect]
     Active Substance: DRONEDARONE
     Indication: Atrial fibrillation
     Dosage: 400 UG/KG, BID
     Route: 048
     Dates: start: 20231011

REACTIONS (3)
  - Disability [Unknown]
  - Illness [Unknown]
  - Wheelchair user [Unknown]

NARRATIVE: CASE EVENT DATE: 20250818
